FAERS Safety Report 6790458-5 (Version None)
Quarter: 2010Q2

REPORT INFORMATION
  Report Type: 
  Country: None (occurrence: None)
  Receive Date: 20100624
  Receipt Date: 20100621
  Transmission Date: 20101027
  Serious: Yes (Other)
  Sender: FDA-Public Use
  Company Number: FR-ROCHE-706301

PATIENT
  Sex: Female
  Weight: 49 kg

DRUGS (5)
  1. BLINDED TOCILIZUMAB [Suspect]
     Indication: RHEUMATOID ARTHRITIS
     Dosage: LAST DOSE PRIOR TO SAE: 19 MAY 2010; FORM VIALS; BATCH NO: 200164 (20 APR 2010), M9F21 (19 MAY 2010)
     Route: 042
     Dates: start: 20100420
  2. METHOTREXATE [Concomitant]
     Dates: start: 20090101
  3. ACIDE FOLIQUE [Concomitant]
     Dates: start: 20090101
  4. PREDNISONE [Concomitant]
     Dates: start: 20091109
  5. PARACETAMOL [Concomitant]
     Dates: start: 20091101

REACTIONS (1)
  - LUNG DISORDER [None]
